FAERS Safety Report 8921078 (Version 1)
Quarter: 2012Q4

REPORT INFORMATION
  Report Type: 
  Country: JP (occurrence: JP)
  Receive Date: 20121123
  Receipt Date: 20121123
  Transmission Date: 20130627
  Serious: Yes (Hospitalization, Other)
  Sender: FDA-Public Use
  Company Number: JP-ROXANE LABORATORIES, INC.-2012-RO-02416RO

PATIENT
  Age: 19 Year
  Sex: Male
  Weight: 53 kg

DRUGS (4)
  1. METHOTREXATE [Suspect]
     Indication: JUVENILE ARTHRITIS
  2. INFLIXIMAB [Suspect]
     Indication: JUVENILE ARTHRITIS
  3. INFLIXIMAB [Suspect]
  4. PREDNISOLONE [Suspect]
     Indication: JUVENILE ARTHRITIS
     Dosage: 10 mg

REACTIONS (5)
  - Germ cell cancer [Recovered/Resolved]
  - Stomatitis [Unknown]
  - Bone marrow failure [Unknown]
  - Central obesity [Unknown]
  - Cushingoid [Unknown]
